FAERS Safety Report 6903229-3 (Version None)
Quarter: 2010Q3

REPORT INFORMATION
  Report Type: 
  Country: None (occurrence: None)
  Receive Date: 20100803
  Receipt Date: 20080909
  Transmission Date: 20110219
  Serious: Yes (Other)
  Sender: FDA-Public Use
  Company Number: US-PFIZER INC-2008076493

PATIENT
  Sex: Female
  Weight: 59 kg

DRUGS (5)
  1. LYRICA [Suspect]
     Indication: MIGRAINE
     Dates: start: 20080501, end: 20080828
  2. CYMBALTA [Concomitant]
  3. SEROQUEL [Concomitant]
  4. ZANAFLEX [Concomitant]
  5. NORTRIPTYLINE [Concomitant]

REACTIONS (1)
  - WEIGHT INCREASED [None]
